FAERS Safety Report 7592477-8 (Version None)
Quarter: 2011Q3

REPORT INFORMATION
  Report Type: 
  Country: None (occurrence: None)
  Receive Date: 20110706
  Receipt Date: 20110629
  Transmission Date: 20111222
  Serious: Yes (Congenital Anomaly)
  Sender: FDA-Public Use
  Company Number: DK-JNJFOC-20110612799

PATIENT

DRUGS (1)
  1. RISPERDAL [Suspect]
     Indication: MATERNAL EXPOSURE DURING PREGNANCY
     Route: 064

REACTIONS (1)
  - HYPOPLASTIC LEFT HEART SYNDROME [None]
